FAERS Safety Report 5481123-5 (Version None)
Quarter: 2007Q4

REPORT INFORMATION
  Report Type: 
  Country: None (occurrence: None)
  Receive Date: 20071004
  Receipt Date: 20070924
  Transmission Date: 20080405
  Serious: Yes (Hospitalization)
  Sender: FDA-Public Use
  Company Number: 440007K07USA

PATIENT
  Age: 41 Year
  Sex: Male
  Weight: 71.2147 kg

DRUGS (4)
  1. ZORBTIVE [Suspect]
     Indication: SHORT-BOWEL SYNDROME
     Dosage: 8.4 MG, 1 IN 1 DAYS, SUBCUTANEOUS; 6.5 MG, 1 IN 1 DAYS, SUBCUTANEOUS
     Route: 058
     Dates: start: 20070401, end: 20070401
  2. ZORBTIVE [Suspect]
     Indication: SHORT-BOWEL SYNDROME
     Dosage: 8.4 MG, 1 IN 1 DAYS, SUBCUTANEOUS; 6.5 MG, 1 IN 1 DAYS, SUBCUTANEOUS
     Route: 058
     Dates: start: 20070401, end: 20070401
  3. REMICADE [Concomitant]
  4. HUMIRA [Concomitant]

REACTIONS (23)
  - ARTHRALGIA [None]
  - BLOOD TESTOSTERONE DECREASED [None]
  - BLOOD TESTOSTERONE FREE DECREASED [None]
  - BLOOD THYROID STIMULATING HORMONE DECREASED [None]
  - BREAST ENGORGEMENT [None]
  - BREAST TENDERNESS [None]
  - CHEST PAIN [None]
  - CLOSTRIDIAL INFECTION [None]
  - DIARRHOEA [None]
  - DYSPNOEA [None]
  - FLUID RETENTION [None]
  - GYNAECOMASTIA [None]
  - HYPERAESTHESIA [None]
  - HYPOAESTHESIA [None]
  - MYALGIA [None]
  - NIGHT SWEATS [None]
  - NIPPLE PAIN [None]
  - NIPPLE SWELLING [None]
  - OEDEMA PERIPHERAL [None]
  - PARAESTHESIA [None]
  - POLYURIA [None]
  - PRURITUS GENERALISED [None]
  - VASODILATATION [None]
